FAERS Safety Report 4975846-1 (Version None)
Quarter: 2006Q2

REPORT INFORMATION
  Report Type: 
  Country: None (occurrence: None)
  Receive Date: 20060411
  Receipt Date: 20060403
  Transmission Date: 20061013
  Serious: Yes (Other)
  Sender: FDA-Public Use
  Company Number: 13702

PATIENT
  Age: 38 Year
  Sex: Female
  Weight: 80 kg

DRUGS (11)
  1. DOXORUBICIN HCL [Suspect]
     Indication: NON-HODGKIN'S LYMPHOMA
  2. VINCRISTINE [Suspect]
     Indication: NON-HODGKIN'S LYMPHOMA
  3. CLOPINE [Suspect]
     Dosage: 700 MG DAILY PO
     Route: 048
     Dates: start: 20041014
  4. CLOZARIL [Suspect]
     Dates: start: 19940405
  5. RITUXIMAB [Suspect]
     Indication: NON-HODGKIN'S LYMPHOMA
  6. PREDNISONE [Suspect]
     Indication: NON-HODGKIN'S LYMPHOMA
  7. CYCLOPHOSPHAMIDE [Suspect]
     Indication: NON-HODGKIN'S LYMPHOMA
  8. LITHIUM CARBONATE [Concomitant]
  9. LAMOTRIGINE [Concomitant]
  10. SERTRALINE [Concomitant]
  11. HALOPERIDOL DECANOATE [Concomitant]

REACTIONS (2)
  - LEUKOPENIA [None]
  - NEUTROPENIA [None]
